FAERS Safety Report 7595503-5 (Version None)
Quarter: 2011Q3

REPORT INFORMATION
  Report Type: 
  Country: None (occurrence: None)
  Receive Date: 20110707
  Receipt Date: 20110630
  Transmission Date: 20111222
  Serious: Yes (Other)
  Sender: FDA-Public Use
  Company Number: US-SP-2011-03935

PATIENT
  Sex: Male

DRUGS (1)
  1. TUBERCULIN NOS [Suspect]
     Indication: TUBERCULIN TEST
     Route: 065

REACTIONS (2)
  - NEUROPATHY PERIPHERAL [None]
  - ADVERSE REACTION [None]
